FAERS Safety Report 6690391-3 (Version None)
Quarter: 2010Q2

REPORT INFORMATION
  Report Type: 
  Country: None (occurrence: None)
  Receive Date: 20100421
  Receipt Date: 20100419
  Transmission Date: 20101027
  Serious: Yes (Hospitalization, Other)
  Sender: FDA-Public Use
  Company Number: GXKR2010DE04335

PATIENT
  Sex: Male

DRUGS (1)
  1. AMOXI 1A PHARMA (NGX) [Suspect]
     Indication: OROPHARYNGEAL PAIN
     Dosage: 750 MG, UNK
     Route: 048
     Dates: start: 20100415

REACTIONS (4)
  - CONVULSION [None]
  - DYSPNOEA [None]
  - PAIN [None]
  - RASH [None]
